FAERS Safety Report 15522085 (Version 1)
Quarter: 2018Q4

REPORT INFORMATION
  Report Type: Spontaneous
  Country: US (occurrence: US)
  Receive Date: 20181018
  Receipt Date: 20181018
  Transmission Date: 20190205
  Serious: Yes (Death, Life-Threatening, Hospitalization)
  Sender: FDA-Public Use
  Company Number: None

PATIENT
  Age: 63 Year
  Sex: Male
  Weight: 90 kg

DRUGS (3)
  1. VICTOZA [Suspect]
     Active Substance: LIRAGLUTIDE
     Indication: BLOOD GLUCOSE INCREASED
     Dosage: ?          QUANTITY:1.8 MG;OTHER ROUTE:INJECTION IN LEG?
     Dates: start: 20180103, end: 20180320
  2. VICTOZA [Suspect]
     Active Substance: LIRAGLUTIDE
     Indication: WEIGHT CONTROL
     Dosage: ?          QUANTITY:1.8 MG;OTHER ROUTE:INJECTION IN LEG?
     Dates: start: 20180103, end: 20180320
  3. METFORMIN [Concomitant]
     Active Substance: METFORMIN HYDROCHLORIDE

REACTIONS (8)
  - Hepatic enzyme increased [None]
  - Asthenia [None]
  - Haemophagocytic lymphohistiocytosis [None]
  - Splenomegaly [None]
  - Pyrexia [None]
  - Hepatomegaly [None]
  - Fatigue [None]
  - Full blood count decreased [None]

NARRATIVE: CASE EVENT DATE: 20180201
